FAERS Safety Report 6719902-6 (Version None)
Quarter: 2010Q2

REPORT INFORMATION
  Report Type: 
  Country: None (occurrence: None)
  Receive Date: 20100507
  Receipt Date: 20100429
  Transmission Date: 20101027
  Serious: Yes (Hospitalization)
  Sender: FDA-Public Use
  Company Number: 2010SP024364

PATIENT
  Age: 57 Year
  Sex: Female
  Weight: 100 kg

DRUGS (2)
  1. PEG-INTRON [Suspect]
     Indication: HEPATITIS C
     Dosage: 150 MCG;QW
     Dates: start: 20091012
  2. REBETOL [Suspect]
     Indication: HEPATITIS C
     Dosage: 600 MG;BID
     Dates: start: 20091012

REACTIONS (8)
  - DRY SKIN [None]
  - EMBOLISM [None]
  - LUNG INFILTRATION [None]
  - MULTI-ORGAN FAILURE [None]
  - MYALGIA [None]
  - RENAL INJURY [None]
  - SKIN DISCOLOURATION [None]
  - TYPE IV HYPERSENSITIVITY REACTION [None]
